FAERS Safety Report 10151395 (Version 1)
Quarter: 2014Q2

REPORT INFORMATION
  Report Type: Spontaneous
  Country: US (occurrence: US)
  Receive Date: 20140502
  Receipt Date: 20140502
  Transmission Date: 20141212
  Serious: No
  Sender: FDA-Public Use
  Company Number: US-B.I. PHARMACEUTICALS,INC./RIDGEFIELD-2014-BI-19308YA

PATIENT
  Sex: Female

DRUGS (1)
  1. FLOMAX CAPSULES [Suspect]
     Indication: MIGRAINE
     Dosage: FORMULATION: MODIFIED-RELEASE CAPSULE, HARD
     Route: 065

REACTIONS (2)
  - Drug ineffective for unapproved indication [Unknown]
  - Off label use [Unknown]
